FAERS Safety Report 7932955-2 (Version None)
Quarter: 2011Q4

REPORT INFORMATION
  Report Type: 
  Country: None (occurrence: None)
  Receive Date: 20111122
  Receipt Date: 20111116
  Transmission Date: 20120403
  Serious: No
  Sender: FDA-Public Use
  Company Number: US-PFIZER INC-2011238165

PATIENT
  Sex: Female
  Weight: 61.224 kg

DRUGS (7)
  1. KLONOPIN [Concomitant]
     Dosage: UNK
  2. MORPHINE [Concomitant]
     Dosage: UNK
  3. DETROL LA [Suspect]
     Indication: NEUROGENIC BLADDER
     Dosage: 4 MG, 1X/DAY
     Route: 048
     Dates: start: 20070601
  4. DETROL LA [Suspect]
     Dosage: 4 MG, 2X/DAY
     Route: 048
     Dates: start: 20110901
  5. PAROXETINE [Concomitant]
     Dosage: UNK
  6. DOXYCYCLINE [Concomitant]
     Dosage: UNK
  7. BACTRIM [Concomitant]
     Dosage: UNK

REACTIONS (4)
  - NOCTURIA [None]
  - URINE CYTOLOGY ABNORMAL [None]
  - POLLAKIURIA [None]
  - MICTURITION URGENCY [None]
